FAERS Safety Report 4933660-7 (Version None)
Quarter: 2006Q1

REPORT INFORMATION
  Report Type: 
  Country: None (occurrence: None)
  Receive Date: 20060306
  Receipt Date: 20060216
  Transmission Date: 20060701
  Serious: Yes (Death, Hospitalization)
  Sender: FDA-Public Use
  Company Number: PHHO2006BR02947

PATIENT
  Age: 82 Year
  Sex: Female

DRUGS (2)
  1. DIOVAN HCT [Suspect]
     Indication: HYPERTENSION
     Dosage: 80/12.5 MG
     Route: 048
  2. ZELNORM [Suspect]
     Indication: CONSTIPATION
     Dosage: UNK, BID
     Route: 048
     Dates: start: 20060101

REACTIONS (9)
  - ACUTE ABDOMEN [None]
  - BILIARY TRACT DISORDER [None]
  - CHOLELITHIASIS [None]
  - CONSTIPATION [None]
  - DRUG INEFFECTIVE [None]
  - PANCREATITIS [None]
  - RESPIRATORY ARREST [None]
  - SEPSIS [None]
  - URINARY TRACT INFECTION [None]
